FAERS Safety Report 8252649-6 (Version None)
Quarter: 2012Q2

REPORT INFORMATION
  Report Type: 
  Country: None (occurrence: None)
  Receive Date: 20120402
  Receipt Date: 20110817
  Transmission Date: 20120825
  Serious: No
  Sender: FDA-Public Use
  Company Number: US-ABBOTT-11P-163-0848101-00

PATIENT
  Age: 56 Year
  Sex: Male
  Weight: 81.72 kg

DRUGS (2)
  1. ANDROGEL [Suspect]
     Indication: BLOOD TESTOSTERONE DECREASED
     Dosage: 4 PUMPS PER DAY
     Dates: start: 20100101
  2. CLONOPIN [Concomitant]
     Indication: IRRITABLE BOWEL SYNDROME

REACTIONS (9)
  - MYALGIA [None]
  - ARTHRALGIA [None]
  - LIQUID PRODUCT PHYSICAL ISSUE [None]
  - FALL [None]
  - SKIN EXFOLIATION [None]
  - PROSTATIC SPECIFIC ANTIGEN INCREASED [None]
  - BLOOD TESTOSTERONE ABNORMAL [None]
  - LIGAMENT SPRAIN [None]
  - PRODUCT ODOUR ABNORMAL [None]
